FAERS Safety Report 5189041-7 (Version None)
Quarter: 2006Q4

REPORT INFORMATION
  Report Type: 
  Country: None (occurrence: None)
  Receive Date: 20061215
  Receipt Date: 20061201
  Transmission Date: 20070319
  Serious: Yes (Hospitalization, Other)
  Sender: FDA-Public Use
  Company Number: 2006BH007685

PATIENT
  Age: 49 Year
  Sex: Male
  Weight: 89.5 kg

DRUGS (13)
  1. EXTRANEAL [Suspect]
     Indication: PERITONEAL DIALYSIS
     Dosage: 2000 ML; EVERY DAY;IP
     Route: 033
     Dates: start: 20030201
  2. PHYSIOSOL IN PLASTIC CONTAINER [Suspect]
     Indication: PERITONEAL DIALYSIS
     Dosage: SEE IMAGE
     Route: 033
     Dates: start: 20040916
  3. PHYSIOSOL IN PLASTIC CONTAINER [Suspect]
     Indication: PERITONEAL DIALYSIS
     Dosage: SEE IMAGE
     Route: 033
     Dates: start: 20040916
  4. FUROSEMIDE [Concomitant]
  5. METOPROLOL SUCCINATE [Concomitant]
  6. ESOMEPRAZOLE MAGNESIUM [Concomitant]
  7. ENALAPRIL MALEATE [Concomitant]
  8. VITAMIN B1 AND B6 [Concomitant]
  9. DOXAZOSIN MESYLATE [Concomitant]
  10. LERCANIDIPINE [Concomitant]
  11. DIGITOXIN TAB [Concomitant]
  12. LINEZOLID [Concomitant]
  13. PHENPROCOUMON [Concomitant]

REACTIONS (6)
  - ENTEROCOCCAL INFECTION [None]
  - GENERAL PHYSICAL HEALTH DETERIORATION [None]
  - PATHOGEN RESISTANCE [None]
  - PERITONITIS [None]
  - STAPHYLOCOCCAL INFECTION [None]
  - URINARY TRACT INFECTION [None]
